FAERS Safety Report 7502309-1 (Version None)
Quarter: 2011Q2

REPORT INFORMATION
  Report Type: 
  Country: None (occurrence: None)
  Receive Date: 20110525
  Receipt Date: 20110505
  Transmission Date: 20111010
  Serious: Yes (Hospitalization, Other)
  Sender: FDA-Public Use
  Company Number: US-BAYER-2011-008147

PATIENT
  Age: 34 Year
  Sex: Female
  Weight: 85.261 kg

DRUGS (8)
  1. FLONASE [Concomitant]
     Dosage: UNK
     Dates: start: 20061016
  2. ALLEGRA D 24 HOUR [Concomitant]
     Dosage: UNK
     Dates: start: 20061016
  3. AYR [Concomitant]
  4. ZEGERID [Concomitant]
     Dosage: UNK
     Dates: start: 20081201
  5. YASMIN [Suspect]
     Indication: ACNE
     Dosage: UNK
     Dates: start: 20020101, end: 20090101
  6. DROSPIRENONE AND ETHINYL ESTRADIOL [Suspect]
     Indication: ACNE
     Dosage: UNK
     Dates: start: 20020101, end: 20090101
  7. MUCINEX [Concomitant]
     Dosage: UNK
     Dates: start: 20071023
  8. ZOLOFT [Concomitant]

REACTIONS (7)
  - PAIN IN EXTREMITY [None]
  - INJURY [None]
  - PAIN [None]
  - THROMBOSIS [None]
  - SWELLING [None]
  - DEEP VEIN THROMBOSIS [None]
  - EMOTIONAL DISTRESS [None]
